FAERS Safety Report 5823923-5 (Version None)
Quarter: 2008Q3

REPORT INFORMATION
  Report Type: 
  Country: None (occurrence: None)
  Receive Date: 20080724
  Receipt Date: 20080717
  Transmission Date: 20090109
  Serious: Yes (Hospitalization)
  Sender: FDA-Public Use
  Company Number: 2008SP012079

PATIENT
  Sex: Female

DRUGS (1)
  1. NASONEX SCNET-FREE [Suspect]
     Indication: DRUG USE FOR UNKNOWN INDICATION
     Dosage: UNK; NAS
     Route: 045

REACTIONS (2)
  - CEREBROVASCULAR ACCIDENT [None]
  - DEVICE FAILURE [None]
